FAERS Safety Report 13256529 (Version 1)
Quarter: 2017Q1

REPORT INFORMATION
  Report Type: Spontaneous
  Country: SE (occurrence: SE)
  Receive Date: 20170221
  Receipt Date: 20170221
  Transmission Date: 20170428
  Serious: Yes (Other)
  Sender: FDA-Public Use
  Company Number: SE-TEVA-740057ACC

PATIENT
  Age: 19 Year
  Sex: Female

DRUGS (1)
  1. CLEOSENSA 0.03 MG / 3 MG FILM-COATED TABLET [Suspect]
     Active Substance: DROSPIRENONE\ETHINYL ESTRADIOL
     Indication: CONTRACEPTION
     Dosage: DOSE ^1^
     Route: 048
     Dates: start: 20161129, end: 20170119

REACTIONS (2)
  - Pruritus [Unknown]
  - Contusion [Unknown]

NARRATIVE: CASE EVENT DATE: 201701
